FAERS Safety Report 6194426-6 (Version None)
Quarter: 2009Q2

REPORT INFORMATION
  Report Type: 
  Country: None (occurrence: None)
  Receive Date: 20090519
  Receipt Date: 20090507
  Transmission Date: 20091009
  Serious: Yes (Other)
  Sender: FDA-Public Use
  Company Number: US-JNJFOC-20090502126

PATIENT
  Age: 8 Year
  Sex: Female

DRUGS (5)
  1. REMICADE [Suspect]
     Indication: CROHN'S DISEASE
     Route: 042
  2. LORATADINE [Concomitant]
     Indication: PREMEDICATION
  3. PREDNISONE [Concomitant]
     Indication: PREMEDICATION
  4. SOLU-MEDROL [Concomitant]
     Indication: PREMEDICATION
     Route: 042
  5. BENADRYL [Concomitant]
     Indication: PREMEDICATION
     Route: 042

REACTIONS (3)
  - INFUSION RELATED REACTION [None]
  - PARAESTHESIA [None]
  - THROAT TIGHTNESS [None]
